FAERS Safety Report 4490190-7 (Version None)
Quarter: 2004Q4

REPORT INFORMATION
  Report Type: 
  Country: None (occurrence: None)
  Receive Date: 20041027
  Receipt Date: 20041014
  Transmission Date: 20050328
  Serious: Yes (Hospitalization, Other)
  Sender: FDA-Public Use
  Company Number: 2004078580

PATIENT
  Sex: Female
  Weight: 170 kg

DRUGS (20)
  1. GLUCOTROL XL [Suspect]
     Indication: DIABETES MELLITUS
     Dosage: 5 MG (5 MG, 1 IN 1 D), ORAL
     Route: 048
  2. SALBUTAMOL SULFATE (SALBUTAMOL SULFATE) [Concomitant]
     Indication: DYSPNOEA
     Dates: start: 20040101
  3. ACETAMINOPHEN [Concomitant]
  4. AXOTAL [Concomitant]
  5. FUROSEMIDE [Concomitant]
  6. GABAPENTIN [Concomitant]
  7. ZAFIRLUKAST (AFIRLUKAST) [Concomitant]
  8. TOLERODINE L-TARTRATE (TOLTERODINE L-TARTRATE) [Concomitant]
  9. METOLAZONE (METOLAZONE)VASTATIN (LOVASTATIN) [Concomitant]
  10. AMLODIPINE BESYLATE [Concomitant]
  11. PANTOPRAZOLE (PANTOPRZOLE) [Concomitant]
  12. CARISOPRODOL [Concomitant]
  13. FENOFIBRATE [Concomitant]
  14. NORTRIPTYLINE HCL [Concomitant]
  15. CILOSTAZOL [Concomitant]
  16. LORATADINE [Concomitant]
  17. ESTROPIPATE [Concomitant]
  18. ALPRAZOLAM [Concomitant]
  19. TRAZODONE HCL [Concomitant]
  20. LOVASTATIN [Concomitant]

REACTIONS (9)
  - BLOOD GLUCOSE FLUCTUATION [None]
  - BLOOD PRESSURE DECREASED [None]
  - LOSS OF CONSCIOUSNESS [None]
  - NEUROPATHY [None]
  - RENAL DISORDER [None]
  - SEPSIS [None]
  - THERAPEUTIC RESPONSE UNEXPECTED [None]
  - TREMOR [None]
  - URINARY TRACT INFECTION [None]
